FAERS Safety Report 8178288-3 (Version None)
Quarter: 2012Q1

REPORT INFORMATION
  Report Type: 
  Country: None (occurrence: None)
  Receive Date: 20120301
  Receipt Date: 20120221
  Transmission Date: 20120608
  Serious: Yes (Disabling)
  Sender: FDA-Public Use
  Company Number: CA-B.I. PHARMACEUTICALS,INC./RIDGEFIELD-2012-CN-00395CN

PATIENT
  Age: 68 Year
  Sex: Male
  Weight: 69.85 kg

DRUGS (6)
  1. APO-TRIHEX [Concomitant]
     Route: 065
  2. RAN-CEFPROZIL [Concomitant]
     Route: 065
  3. MIRAPEX [Suspect]
     Dosage: 4.5 MG
     Route: 048
  4. APO-BISOPROLOL [Concomitant]
     Route: 065
  5. RAN-CEFPROZIL [Concomitant]
     Route: 065
  6. RHO-NITRO [Concomitant]
     Route: 065

REACTIONS (4)
  - EMOTIONAL DISTRESS [None]
  - PSYCHOTIC DISORDER [None]
  - CONFUSIONAL STATE [None]
  - HALLUCINATION, VISUAL [None]
